FAERS Safety Report 7677496-5 (Version None)
Quarter: 2011Q3

REPORT INFORMATION
  Report Type: 
  Country: None (occurrence: None)
  Receive Date: 20110811
  Receipt Date: 20110802
  Transmission Date: 20111222
  Serious: Yes (Hospitalization)
  Sender: FDA-Public Use
  Company Number: US-JNJFOC-20110208359

PATIENT
  Sex: Male
  Weight: 87 kg

DRUGS (31)
  1. MAGNESIUM  OXIDE [Concomitant]
     Indication: BLOOD MAGNESIUM DECREASED
     Route: 048
     Dates: start: 20110106
  2. METFORMIN HCL [Concomitant]
     Indication: DIABETES MELLITUS
     Route: 048
     Dates: start: 20080916
  3. TYLENOL-500 [Concomitant]
     Indication: HEADACHE
     Route: 048
     Dates: start: 20000101
  4. LISINOPRIL AND HYDROCHLOROTHIAZIDE [Concomitant]
     Indication: HYPERTENSION
     Route: 048
     Dates: start: 20090327
  5. SIMVASTATIN [Concomitant]
     Indication: BLOOD CHOLESTEROL INCREASED
     Route: 048
     Dates: start: 20091110
  6. KLOR-CON [Concomitant]
     Route: 048
     Dates: start: 20110106, end: 20110208
  7. ABIRATERONE ACETATE [Suspect]
     Indication: PROSTATE CANCER METASTATIC
     Route: 048
     Dates: start: 20101118, end: 20101208
  8. K- LYTE [Concomitant]
     Indication: HYPOKALAEMIA
     Route: 048
     Dates: start: 20081211, end: 20101110
  9. AMLODIPINE [Concomitant]
     Indication: HYPERTENSION
     Route: 048
     Dates: start: 20090327
  10. KLOR-CON [Concomitant]
     Indication: HYPOKALAEMIA
     Route: 048
     Dates: start: 20110212
  11. K- LYTE [Concomitant]
     Route: 048
     Dates: start: 20081010
  12. IMODIUM [Concomitant]
     Indication: DIARRHOEA
     Dosage: 1 TO 2 TABLETS AS NEEDED
     Route: 048
     Dates: start: 20080801
  13. AMLODIPINE [Concomitant]
     Indication: BLOOD CHOLESTEROL INCREASED
     Route: 048
     Dates: start: 20090327
  14. GLYBURIDE [Concomitant]
     Indication: DIABETES MELLITUS
     Route: 048
     Dates: start: 20090402
  15. KLOR-CON [Concomitant]
     Route: 048
     Dates: start: 20110209, end: 20110211
  16. ABIRATERONE ACETATE [Suspect]
     Route: 048
     Dates: start: 20101020, end: 20101110
  17. BYSTOLIC [Concomitant]
     Indication: HYPERTENSION
     Route: 048
     Dates: start: 20090521, end: 20090521
  18. LUPRON [Concomitant]
     Indication: PROSTATE CANCER
     Route: 030
     Dates: start: 20081016
  19. AMLODIPINE [Concomitant]
     Indication: HYPERTENSIVE HEART DISEASE
     Route: 048
     Dates: start: 20090327
  20. PREDNISONE [Suspect]
     Indication: PROSTATE CANCER METASTATIC
     Route: 048
     Dates: start: 20101014
  21. NORCO [Concomitant]
     Indication: ORAL PAIN
     Dosage: AS NEEDED (PRN) EVERY 4 - 6 HOURS
     Route: 048
     Dates: start: 20091019
  22. LANTUS [Concomitant]
     Indication: DIABETES MELLITUS
     Route: 058
     Dates: start: 20050101
  23. IMODIUM [Concomitant]
     Route: 048
     Dates: start: 20070801
  24. NORCO [Concomitant]
     Indication: ARTHRALGIA
     Dosage: AS NEEDED (PRN) EVERY 4 - 6 HOURS
     Route: 048
     Dates: start: 20081007
  25. LISINOPRIL AND HYDROCHLOROTHIAZIDE [Concomitant]
     Indication: HYPERTENSIVE HEART DISEASE
     Route: 048
     Dates: start: 20090327
  26. MAGNESIUM  OXIDE [Concomitant]
     Route: 048
     Dates: start: 20090129, end: 20100331
  27. ABIRATERONE ACETATE [Suspect]
     Route: 048
     Dates: start: 20110307
  28. ABIRATERONE ACETATE [Suspect]
     Route: 048
     Dates: start: 20101223, end: 20110219
  29. NORCO [Concomitant]
     Indication: BACK PAIN
     Dosage: AS NEEDED (PRN) EVERY 4 - 6 HOURS
     Route: 048
     Dates: start: 20091019
  30. NORCO [Concomitant]
     Indication: MUSCLE SPASMS
     Dosage: AS NEEDED (PRN) EVERY 4 - 6 HOURS
     Route: 048
     Dates: start: 20091019
  31. HUMALOG [Concomitant]
     Indication: DIABETES MELLITUS
     Dosage: 3-12 UNITS
     Route: 058
     Dates: start: 20050101, end: 20110219

REACTIONS (1)
  - HYPOKALAEMIA [None]
